FAERS Safety Report 24986052 (Version 1)
Quarter: 2025Q1

REPORT INFORMATION
  Report Type: Spontaneous
  Country: US (occurrence: None)
  Receive Date: 20250219
  Receipt Date: 20250219
  Transmission Date: 20250408
  Serious: Yes (Hospitalization)
  Sender: FDA-CTU
  Company Number: None

PATIENT
  Sex: Male

DRUGS (1)
  1. SPRYCEL [Suspect]
     Active Substance: DASATINIB
     Indication: Philadelphia chromosome positive
     Dosage: OTHER QUANTITY : TAKE 1 TABLET (100 MG TOTAL);?FREQUENCY : DAILY;?
     Route: 048
     Dates: start: 20211006

REACTIONS (2)
  - Hospitalisation [None]
  - Therapy interrupted [None]
